FAERS Safety Report 21105208 (Version 1)
Quarter: 2022Q3

REPORT INFORMATION
  Report Type: Spontaneous
  Country: US (occurrence: None)
  Receive Date: 20220719
  Receipt Date: 20220719
  Transmission Date: 20221027
  Serious: Yes (Life-Threatening, Hospitalization, Disabling)
  Sender: FDA-Public Use
  Company Number: None

PATIENT
  Age: 24 Year
  Sex: Female
  Weight: 44.1 kg

DRUGS (10)
  1. MONTELUKAST [Suspect]
     Active Substance: MONTELUKAST SODIUM
     Indication: Asthma
     Dosage: FREQUENCY : DAILY;?
     Route: 048
  2. ALBUTEROL SULFATE [Concomitant]
     Active Substance: ALBUTEROL SULFATE
  3. ADDERALL [Concomitant]
     Active Substance: AMPHETAMINE ASPARTATE\AMPHETAMINE SULFATE\DEXTROAMPHETAMINE SACCHARATE\DEXTROAMPHETAMINE SULFATE
  4. Nebulizer [Concomitant]
  5. TRELEGY ELLIPTA [Concomitant]
     Active Substance: FLUTICASONE FUROATE\UMECLIDINIUM BROMIDE\VILANTEROL TRIFENATATE
  6. Hydroxezine [Concomitant]
  7. PROCTOFOAM [Concomitant]
     Active Substance: PRAMOXINE HYDROCHLORIDE
  8. Ginger supplement [Concomitant]
  9. Fish oil supplement [Concomitant]
  10. Black Currant Seed Supplement [Concomitant]

REACTIONS (47)
  - Arthralgia [None]
  - Sleep disorder [None]
  - Nightmare [None]
  - Panic attack [None]
  - Agitation [None]
  - Irritability [None]
  - Confusional state [None]
  - Merycism [None]
  - Memory impairment [None]
  - Dissociation [None]
  - Paranoia [None]
  - Depression [None]
  - Anxiety [None]
  - Suicidal ideation [None]
  - Intentional self-injury [None]
  - Impaired healing [None]
  - Contusion [None]
  - Fatigue [None]
  - Sinus tachycardia [None]
  - Neuropathy peripheral [None]
  - Muscle contractions involuntary [None]
  - Movement disorder [None]
  - Pruritus [None]
  - Temperature intolerance [None]
  - Headache [None]
  - Migraine [None]
  - Quality of life decreased [None]
  - Bladder spasm [None]
  - Oral discomfort [None]
  - Facial pain [None]
  - Flushing [None]
  - Influenza like illness [None]
  - Peripheral vascular disorder [None]
  - Syncope [None]
  - Photophobia [None]
  - Eustachian tube dysfunction [None]
  - Asthma [None]
  - Alcohol intolerance [None]
  - Haematocrit increased [None]
  - Haemoglobin increased [None]
  - Blood bilirubin increased [None]
  - Red blood cell count increased [None]
  - White blood cell count decreased [None]
  - Platelet count decreased [None]
  - Aggression [None]
  - Unevaluable event [None]
  - Impaired gastric emptying [None]

NARRATIVE: CASE EVENT DATE: 20180820
